FAERS Safety Report 15791576 (Version 1)
Quarter: 2019Q1

REPORT INFORMATION
  Report Type: Spontaneous
  Country: US (occurrence: US)
  Receive Date: 20190104
  Receipt Date: 20190104
  Transmission Date: 20190417
  Serious: Yes (Other)
  Sender: FDA-Public Use
  Company Number: US-JNJFOC-20181222047

PATIENT
  Sex: Female

DRUGS (1)
  1. LEVAQUIN [Suspect]
     Active Substance: LEVOFLOXACIN
     Indication: URINARY TRACT INFECTION
     Route: 048

REACTIONS (9)
  - Clostridium difficile infection [Not Recovered/Not Resolved]
  - Insomnia [Unknown]
  - Urinary tract infection [Not Recovered/Not Resolved]
  - Incorrect dose administered [Unknown]
  - Gait inability [Unknown]
  - Tremor [Unknown]
  - Bursitis [Unknown]
  - Nervousness [Unknown]
  - Off label use [Unknown]
